FAERS Safety Report 25867685 (Version 3)
Quarter: 2025Q4

REPORT INFORMATION
  Report Type: Report from Study
  Country: BR (occurrence: BR)
  Receive Date: 20251001
  Receipt Date: 20251231
  Transmission Date: 20260117
  Serious: Yes (Hospitalization, Other)
  Sender: ALEXION PHARMACEUTICALS
  Company Number: BR-AstraZeneca-CH-00956731A

PATIENT
  Age: 13 Year
  Sex: Male
  Weight: 36 kg

DRUGS (3)
  1. SOLIRIS [Suspect]
     Active Substance: ECULIZUMAB
     Indication: Atypical haemolytic uraemic syndrome
     Dosage: 600 MILLIGRAM,SINGLE
     Dates: start: 20161024, end: 20161024
  2. SOLIRIS [Suspect]
     Active Substance: ECULIZUMAB
     Dosage: 900 MILLIGRAM, Q2W
     Dates: start: 20161101, end: 20250829
  3. SOLIRIS [Suspect]
     Active Substance: ECULIZUMAB
     Dosage: 1200 MILLIGRAM, Q2W
     Dates: start: 20250912

REACTIONS (7)
  - Disease recurrence [Unknown]
  - Renal impairment [Recovering/Resolving]
  - Nephrotic syndrome [Unknown]
  - Platelet count decreased [Unknown]
  - Weight increased [Unknown]
  - Off label use [Recovered/Resolved]
  - Product availability issue [Recovered/Resolved]

NARRATIVE: CASE EVENT DATE: 20161024
